FAERS Safety Report 25914176 (Version 3)
Quarter: 2025Q4

REPORT INFORMATION
  Report Type: Report from Study
  Country: US (occurrence: US)
  Receive Date: 20251013
  Receipt Date: 20251201
  Transmission Date: 20260117
  Serious: No
  Sender: MALLINCKRODT
  Company Number: US-MALLINCKRODT-MNK202506331

PATIENT
  Sex: Female

DRUGS (2)
  1. CORTICOTROPIN [Suspect]
     Active Substance: CORTICOTROPIN
     Indication: Nephrotic syndrome
  2. CORTICOTROPIN [Suspect]
     Active Substance: CORTICOTROPIN
     Indication: Nephritic syndrome
     Dates: start: 20251007

REACTIONS (8)
  - Tremor [Unknown]
  - Pruritus [Unknown]
  - Joint swelling [Unknown]
  - Immune system disorder [Unknown]
  - Cushingoid [Unknown]
  - Weight increased [Unknown]
  - Rash [Unknown]
  - Fungal skin infection [Recovering/Resolving]
